FAERS Safety Report 15216730 (Version 1)
Quarter: 2018Q3

REPORT INFORMATION
  Report Type: Report from Study
  Country: US (occurrence: US)
  Receive Date: 20180730
  Receipt Date: 20180730
  Transmission Date: 20181010
  Serious: Yes (Hospitalization)
  Sender: FDA-Public Use
  Company Number: US-GILEAD-2018-0352309

PATIENT
  Age: 56 Year
  Sex: Female

DRUGS (1)
  1. ELVITEGRAVIR/EMTRICITABINE/TENOFOVIR DF/COBICISTAT [Suspect]
     Active Substance: COBICISTAT\ELVITEGRAVIR\EMTRICITABINE\TENOFOVIR
     Indication: HIV INFECTION
     Dosage: 150/150/200/300 MG, QD
     Route: 048

REACTIONS (5)
  - Apathy [Unknown]
  - Hypophagia [Unknown]
  - Product use issue [Unknown]
  - Eating disorder [Unknown]
  - Weight decreased [Unknown]
